FAERS Safety Report 6114873-8 (Version None)
Quarter: 2009Q1

REPORT INFORMATION
  Report Type: 
  Country: None (occurrence: None)
  Receive Date: 20090311
  Receipt Date: 20080609
  Transmission Date: 20090719
  Serious: Yes (Other)
  Sender: FDA-Public Use
  Company Number: US200806001993

PATIENT
  Sex: Male

DRUGS (19)
  1. ALIMTA [Suspect]
     Indication: NON-SMALL CELL LUNG CANCER
     Dates: start: 20080604
  2. GEMZAR [Suspect]
     Indication: NON-SMALL CELL LUNG CANCER
     Dates: start: 20070907, end: 20071226
  3. AVASTIN [Concomitant]
  4. CARBOPLATIN [Concomitant]
  5. VITAMIN B12 [Concomitant]
  6. FOLIC ACID [Concomitant]
  7. BENADRYL [Concomitant]
  8. ALOXI [Concomitant]
  9. DECADRON [Concomitant]
  10. ATENOLOL [Concomitant]
  11. VERAPAMIL [Concomitant]
  12. FUROSEMIDE [Concomitant]
  13. PEPCID [Concomitant]
  14. DOXAZOSIN MESYLATE [Concomitant]
  15. HYDROCODONE (HYDROCODONE) [Concomitant]
  16. DARVOCET [Concomitant]
  17. ACETAMINOPHEN [Concomitant]
  18. DULCOLAX [Concomitant]
  19. NORVASC [Concomitant]

REACTIONS (11)
  - ANOREXIA [None]
  - CHILLS [None]
  - DYSPNOEA [None]
  - EYE IRRITATION [None]
  - FACIAL PAIN [None]
  - FATIGUE [None]
  - FLUSHING [None]
  - MALIGNANT NEOPLASM PROGRESSION [None]
  - NAUSEA [None]
  - NON-CARDIAC CHEST PAIN [None]
  - PLEURAL EFFUSION [None]
